FAERS Safety Report 6314313-X (Version None)
Quarter: 2009Q3

REPORT INFORMATION
  Report Type: 
  Country: None (occurrence: None)
  Receive Date: 20090819
  Receipt Date: 20090811
  Transmission Date: 20100115
  Serious: Yes (Other)
  Sender: FDA-Public Use
  Company Number: US-BIOGENIDEC-2009BI025412

PATIENT
  Age: 49 Year
  Sex: Male
  Weight: 84 kg

DRUGS (5)
  1. TYSABRI [Suspect]
     Indication: MULTIPLE SCLEROSIS
     Route: 042
     Dates: start: 20090401
  2. PROVIGIL [Concomitant]
     Indication: FATIGUE
     Dates: start: 20040101
  3. BACLOFEN [Concomitant]
     Indication: MUSCLE SPASMS
     Dates: start: 20040101
  4. ZOLOFT [Concomitant]
     Indication: DEPRESSION
     Dates: start: 20040101
  5. TOLTERODINE TARTRATE [Concomitant]
     Indication: MICTURITION URGENCY
     Dates: start: 20060101

REACTIONS (1)
  - CONVULSION [None]
